FAERS Safety Report 26058285 (Version 1)
Quarter: 2025Q4

REPORT INFORMATION
  Report Type: Spontaneous
  Country: IN (occurrence: IN)
  Receive Date: 20251118
  Receipt Date: 20251118
  Transmission Date: 20260117
  Serious: Yes (Other)
  Sender: NOVARTIS
  Company Number: IN-002147023-NVSC2025IN175238

PATIENT
  Sex: Female

DRUGS (1)
  1. RIBOCICLIB [Suspect]
     Active Substance: RIBOCICLIB
     Indication: Metastatic neoplasm
     Dosage: 400 MG, QD
     Route: 048

REACTIONS (7)
  - Breast cancer [Unknown]
  - Metastases to chest wall [Unknown]
  - Metastases to skin [Unknown]
  - Malignant neoplasm progression [Unknown]
  - Metastases to bone [Unknown]
  - White blood cell count decreased [Unknown]
  - Off label use [Unknown]
